FAERS Safety Report 18631550 (Version 1)
Quarter: 2020Q4

REPORT INFORMATION
  Report Type: Report from Study
  Country: CA (occurrence: CA)
  Receive Date: 20201218
  Receipt Date: 20201218
  Transmission Date: 20210114
  Serious: Yes (Other)
  Sender: FDA-Public Use
  Company Number: CA-JNJFOC-20201225778

PATIENT
  Age: 13 Year
  Sex: Male
  Weight: 46 kg

DRUGS (2)
  1. REMICADE [Suspect]
     Active Substance: INFLIXIMAB
     Dosage: 350 MG Q 4 TO 6 WEEKS
     Route: 042
     Dates: start: 20201210
  2. REMICADE [Suspect]
     Active Substance: INFLIXIMAB
     Indication: CROHN^S DISEASE
     Dosage: ON 11-DEC-2020, THE PATIENT RECEIVED 04TH INFLIXIMAB INFUSION FOR DOSE OF 350 MG AND PARTIAL HARVEY-
     Route: 042
     Dates: start: 20200918

REACTIONS (3)
  - Product use issue [Unknown]
  - Crohn^s disease [Recovering/Resolving]
  - Off label use [Unknown]

NARRATIVE: CASE EVENT DATE: 20201204
